FAERS Safety Report 11060834 (Version 4)
Quarter: 2015Q4

REPORT INFORMATION
  Report Type: Spontaneous
  Country: JP (occurrence: JP)
  Receive Date: 20150423
  Receipt Date: 20151007
  Transmission Date: 20160304
  Serious: Yes (Other)
  Sender: FDA-Public Use
  Company Number: JP-ROCHE-1567949

PATIENT
  Age: 56 Year
  Sex: Female

DRUGS (1)
  1. HERCEPTIN [Suspect]
     Active Substance: TRASTUZUMAB
     Indication: BREAST CANCER
     Dosage: DOSAGE UNCERTAIN.
     Route: 041

REACTIONS (5)
  - Vision blurred [Unknown]
  - Colitis ulcerative [Unknown]
  - Cardiac failure [Unknown]
  - Asthenia [Unknown]
  - Decreased appetite [Unknown]
